FAERS Safety Report 7883623-7 (Version None)
Quarter: 2011Q4

REPORT INFORMATION
  Report Type: 
  Country: None (occurrence: None)
  Receive Date: 20111102
  Receipt Date: 20111026
  Transmission Date: 20120403
  Serious: Yes (Other)
  Sender: FDA-Public Use
  Company Number: US-BAYER-201012060NA

PATIENT
  Age: 52 Year
  Sex: Male
  Weight: 119.73 kg

DRUGS (35)
  1. PAVULON [Concomitant]
     Dosage: UNK
     Route: 042
     Dates: start: 20031113
  2. DIURIL [Concomitant]
     Dosage: 1000 MG, UNK
     Route: 042
     Dates: start: 20031113
  3. EPINEPHRINE [Concomitant]
     Dosage: UNK
     Route: 042
     Dates: start: 20031113
  4. BENAZEPRIL HYDROCHLORIDE [Concomitant]
     Dosage: 5 MG, QD
     Route: 048
     Dates: start: 20031107
  5. NITROGLYCERIN [Concomitant]
     Dosage: UNK
     Route: 042
     Dates: start: 20031110
  6. INSULIN [Concomitant]
     Dosage: UNK
     Route: 058
     Dates: start: 20031109
  7. ATENOLOL [Concomitant]
     Route: 048
  8. PRIMACOR [Concomitant]
     Route: 042
  9. LIPITOR [Concomitant]
     Dosage: 20 MG, QD
     Route: 048
     Dates: start: 20031109
  10. TRASYLOL [Suspect]
     Dosage: 50 ML/HR (INFUSION)
     Route: 042
     Dates: start: 20031113, end: 20031113
  11. VERSED [Concomitant]
     Dosage: 5 MG, UNK
     Route: 042
     Dates: start: 20031113
  12. MAGNESIUM SULFATE [Concomitant]
     Dosage: UNK
     Route: 042
     Dates: start: 20031113
  13. LEVOPHED [Concomitant]
     Dosage: UNK
     Route: 042
     Dates: start: 20031113
  14. PEPCID [Concomitant]
     Dosage: 20 MG, UNK
     Route: 042
     Dates: start: 20031113
  15. PROTAMINE SULFATE [Concomitant]
     Dosage: 500 MG, UNK
     Route: 042
     Dates: start: 20031113
  16. LOPRESSOR [Concomitant]
     Dosage: 12.5 MG, BID
     Route: 048
     Dates: start: 20031107
  17. ISOFLURANE [Concomitant]
     Dosage: UNK, INHALED
     Route: 055
     Dates: start: 20031113
  18. ROCEPHIN [Concomitant]
     Dosage: 1 G, UNK
     Route: 042
     Dates: start: 20031113
  19. PLAVIX [Concomitant]
     Dosage: 75 MG, QD
     Dates: start: 20031108, end: 20031110
  20. SPIRONOLACTONE [Concomitant]
     Dosage: 12.5 MG, QD
     Route: 048
  21. ACETYLSALICYLIC ACID SRT [Concomitant]
     Dosage: 325 MG, UNK
     Route: 048
  22. LASIX [Concomitant]
     Dosage: 200 MG, UNK
     Route: 042
     Dates: start: 20031113
  23. CALCIUM CHLORIDE [Concomitant]
     Dosage: UNK
     Route: 042
     Dates: start: 20031113
  24. HEPARIN [Concomitant]
     Dosage: 800 UNITS/HR
     Route: 042
     Dates: start: 20031110
  25. TRASYLOL [Suspect]
     Indication: CORONARY ARTERY BYPASS
     Dosage: 100 ML, ONCE (LOADING)
     Route: 042
     Dates: start: 20031113, end: 20031113
  26. FENTANYL [Concomitant]
     Dosage: 1000 MCG
     Route: 042
     Dates: start: 20031113
  27. PROPOFOL [Concomitant]
     Dosage: 200 MG, UNK
     Route: 042
     Dates: start: 20031113
  28. DECADRON [Concomitant]
     Dosage: 100 MG, UNK
     Route: 042
     Dates: start: 20031113
  29. BUMEX [Concomitant]
     Dosage: 10 MG, UNK
     Route: 042
     Dates: start: 20031113
  30. BENADRYL [Concomitant]
     Dosage: 50 MG, UNK
     Route: 042
     Dates: start: 20031113
  31. VANCOMYCIN HCL [Concomitant]
     Dosage: 1 G, UNK
     Route: 042
     Dates: start: 20031113
  32. NITROGLYCERIN [Concomitant]
     Dosage: UNK
     Route: 042
     Dates: start: 20031113
  33. HYDRALAZINE HCL [Concomitant]
  34. PANTOPRAZOLE [Concomitant]
     Dosage: 40 MG, QD
     Route: 048
     Dates: start: 20031107
  35. HYDROCHLOROTHIAZIDE [Concomitant]
     Dosage: 12.5 MG, QD
     Route: 048
     Dates: start: 20031110

REACTIONS (13)
  - MULTI-ORGAN FAILURE [None]
  - EMOTIONAL DISTRESS [None]
  - FEAR [None]
  - ANHEDONIA [None]
  - RENAL INJURY [None]
  - UNEVALUABLE EVENT [None]
  - INJURY [None]
  - DEPRESSION [None]
  - RENAL FAILURE [None]
  - STRESS [None]
  - PAIN [None]
  - RENAL IMPAIRMENT [None]
  - ANXIETY [None]
